FAERS Safety Report 14425667 (Version 1)
Quarter: 2018Q1

REPORT INFORMATION
  Report Type: Spontaneous
  Country: CN (occurrence: CN)
  Receive Date: 20180123
  Receipt Date: 20180123
  Transmission Date: 20180509
  Serious: Yes (Hospitalization, Other)
  Sender: FDA-Public Use
  Company Number: CN-GILEAD-2018-0316419

PATIENT
  Age: 26 Year
  Sex: Male

DRUGS (2)
  1. HEPSERA [Suspect]
     Active Substance: ADEFOVIR DIPIVOXIL
     Indication: CHRONIC HEPATITIS B
     Dosage: UNK
     Route: 065
     Dates: end: 20171222
  2. VIREAD [Suspect]
     Active Substance: TENOFOVIR DISOPROXIL FUMARATE
     Indication: CHRONIC HEPATITIS B
     Dosage: 300 MG, QD
     Route: 048
     Dates: end: 20180114

REACTIONS (4)
  - Rhabdomyolysis [Unknown]
  - Hepatic function abnormal [Not Recovered/Not Resolved]
  - Multiple-drug resistance [Unknown]
  - Pain in extremity [Unknown]

NARRATIVE: CASE EVENT DATE: 201711
